FAERS Safety Report 8976493 (Version 2)
Quarter: 2013Q1

REPORT INFORMATION
  Report Type: Spontaneous
  Country: CA (occurrence: CA)
  Receive Date: 20121220
  Receipt Date: 20130215
  Transmission Date: 20140127
  Serious: Yes (Hospitalization)
  Sender: FDA-Public Use
  Company Number: CA-ELI_LILLY_AND_COMPANY-CA201212003777

PATIENT
  Age: 66 Year
  Sex: Female
  Weight: 68.03 kg

DRUGS (7)
  1. FORTEO [Suspect]
     Indication: OSTEOPOROSIS
     Dosage: 20 UG, QD
     Route: 058
     Dates: start: 20120612
  2. SYNTHROID [Concomitant]
  3. LIPITOR [Concomitant]
  4. VITAMIN B12 [Concomitant]
  5. VITAMIN D [Concomitant]
  6. CARBOCAL D [Concomitant]
  7. INSULIN [Concomitant]

REACTIONS (2)
  - Ankle fracture [Recovering/Resolving]
  - Fall [Recovered/Resolved]
